FAERS Safety Report 7301576-7 (Version None)
Quarter: 2011Q1

REPORT INFORMATION
  Report Type: 
  Country: None (occurrence: None)
  Receive Date: 20110218
  Receipt Date: 20110210
  Transmission Date: 20110831
  Serious: Yes (Other)
  Sender: FDA-Public Use
  Company Number: DE-ELI_LILLY_AND_COMPANY-DE201102002928

PATIENT
  Age: 62 Year
  Sex: Female

DRUGS (3)
  1. AMISULPRID [Concomitant]
     Dosage: 200 MG, UNK
     Dates: start: 20100601, end: 20110201
  2. TRIMIPRAMINE [Concomitant]
     Dosage: 50 MG, UNKNOWN
     Route: 065
     Dates: start: 20100601, end: 20110201
  3. ZYPADHERA [Suspect]
     Indication: SCHIZOPHRENIA, PARANOID TYPE
     Dosage: 300 MG, UNK
     Route: 030
     Dates: start: 20100601, end: 20110201

REACTIONS (4)
  - PNEUMONIA [None]
  - EOSINOPHILIA [None]
  - SYNCOPE [None]
  - NEUTROPENIA [None]
